FAERS Safety Report 4870218-2 (Version None)
Quarter: 2005Q4

REPORT INFORMATION
  Report Type: 
  Country: None (occurrence: None)
  Receive Date: 20051228
  Receipt Date: 20051215
  Transmission Date: 20060501
  Serious: Yes (Hospitalization)
  Sender: FDA-Public Use
  Company Number: DEU-2005-0001851

PATIENT
  Age: 49 Year
  Sex: Male

DRUGS (1)
  1. OXYCODONE HCL [Suspect]
     Indication: PAIN
     Dosage: 110 MG, DAILY; ORAL
     Route: 048
     Dates: start: 20050701

REACTIONS (8)
  - ANXIETY DISORDER [None]
  - DEPRESSION [None]
  - DRUG DEPENDENCE [None]
  - DRUG TOLERANCE INCREASED [None]
  - HYPERHIDROSIS [None]
  - NIGHTMARE [None]
  - PANIC DISORDER [None]
  - TREMOR [None]
